FAERS Safety Report 25077166 (Version 1)
Quarter: 2025Q1

REPORT INFORMATION
  Report Type: Spontaneous
  Country: US (occurrence: US)
  Receive Date: 20250314
  Receipt Date: 20250314
  Transmission Date: 20250409
  Serious: Yes (Other)
  Sender: Kenvue
  Company Number: US-KENVUE-20250302027

PATIENT

DRUGS (1)
  1. TYLENOL [Suspect]
     Active Substance: ACETAMINOPHEN
     Indication: Product used for unknown indication
     Route: 065

REACTIONS (6)
  - Gastric haemorrhage [Not Recovered/Not Resolved]
  - Hypoglycaemia [Recovering/Resolving]
  - Bowel movement irregularity [Not Recovered/Not Resolved]
  - Polyp [Not Recovered/Not Resolved]
  - Decreased activity [Not Recovered/Not Resolved]
  - Colon injury [Not Recovered/Not Resolved]

NARRATIVE: CASE EVENT DATE: 20250201
